FAERS Safety Report 4510490-1 (Version None)
Quarter: 2004Q4

REPORT INFORMATION
  Report Type: 
  Country: None (occurrence: None)
  Receive Date: 20041124
  Receipt Date: 20041118
  Transmission Date: 20050328
  Serious: Yes (Other)
  Sender: FDA-Public Use
  Company Number: PHRM2004FR03416

PATIENT
  Age: 50 Year
  Sex: Male

DRUGS (1)
  1. LESCOL [Suspect]
     Route: 048

REACTIONS (2)
  - BENIGN PROSTATIC HYPERPLASIA [None]
  - PROSTATIC SPECIFIC ANTIGEN INCREASED [None]
